FAERS Safety Report 6966232-3 (Version None)
Quarter: 2010Q3

REPORT INFORMATION
  Report Type: 
  Country: None (occurrence: None)
  Receive Date: 20100903
  Receipt Date: 20100824
  Transmission Date: 20110219
  Serious: Yes (Hospitalization)
  Sender: FDA-Public Use
  Company Number: BR-GENENTECH-305954

PATIENT
  Age: 37 Year
  Sex: Female

DRUGS (4)
  1. MABTHERA [Suspect]
     Indication: JUVENILE ARTHRITIS
     Dosage: UNK
     Route: 065
     Dates: start: 20080701, end: 20090201
  2. METHOTREXATE [Concomitant]
     Indication: JUVENILE ARTHRITIS
     Dosage: UNK
  3. CORTICOSTEROIDS [Concomitant]
     Indication: JUVENILE ARTHRITIS
     Dosage: UNK
  4. HYDROXYCHLOROQUINE [Concomitant]
     Indication: JUVENILE ARTHRITIS
     Dosage: UNK

REACTIONS (6)
  - ARTHRALGIA [None]
  - GESTATIONAL HYPERTENSION [None]
  - PAIN [None]
  - PROCEDURAL HYPERTENSION [None]
  - STRESS [None]
  - THERAPEUTIC RESPONSE DECREASED [None]
